FAERS Safety Report 24151499 (Version 1)
Quarter: 2024Q3

REPORT INFORMATION
  Report Type: Spontaneous
  Country: US (occurrence: None)
  Receive Date: 20240729
  Receipt Date: 20240729
  Transmission Date: 20241016
  Serious: No
  Sender: Public
  Company Number: None

PATIENT
  Age: 71 Year
  Sex: Female
  Weight: 97.65 kg

DRUGS (6)
  1. CVS MEDICATED ANTI ITCH [Suspect]
     Active Substance: MENTHOL\PRAMOXINE HYDROCHLORIDE
     Indication: Vulvovaginal pruritus
     Dosage: ?OTHER QUANTITY : 2 OUNCE(S)?FREQUENCY : AS NEEDED?
     Route: 061
     Dates: start: 20240718, end: 20240718
  2. CVS MEDICATED ANTI ITCH [Suspect]
     Active Substance: MENTHOL\PRAMOXINE HYDROCHLORIDE
     Indication: Genital pain
  3. CVS MEDICATED ANTI ITCH [Suspect]
     Active Substance: MENTHOL\PRAMOXINE HYDROCHLORIDE
     Indication: Burning sensation
  4. TOBRAMYACYN [Concomitant]
  5. ATORVASTATIN [Concomitant]
     Active Substance: ATORVASTATIN
  6. MELOXICAM [Concomitant]
     Active Substance: MELOXICAM

REACTIONS (4)
  - Vulvovaginal burning sensation [None]
  - Application site pain [None]
  - Product communication issue [None]
  - Product use complaint [None]

NARRATIVE: CASE EVENT DATE: 20240722
